FAERS Safety Report 15841534 (Version 3)
Quarter: 2019Q1

REPORT INFORMATION
  Report Type: Spontaneous
  Country: JP (occurrence: JP)
  Receive Date: 20190118
  Receipt Date: 20190326
  Transmission Date: 20190417
  Serious: Yes (Hospitalization, Other)
  Sender: FDA-Public Use
  Company Number: JP-TEVA-2019-JP-999371

PATIENT
  Age: 70 Year
  Sex: Female
  Weight: 73 kg

DRUGS (5)
  1. ADRENAL HORMONE PREPARATIONS [Concomitant]
     Active Substance: UNSPECIFIED INGREDIENT
     Dates: start: 20181225, end: 20190106
  2. TRISENOX [Suspect]
     Active Substance: ARSENIC TRIOXIDE
     Route: 042
     Dates: start: 20190117
  3. ADRENAL HORMONE PREPARATIONS [Concomitant]
     Active Substance: UNSPECIFIED INGREDIENT
  4. TRISENOX [Suspect]
     Active Substance: ARSENIC TRIOXIDE
     Indication: ACUTE PROMYELOCYTIC LEUKAEMIA
     Dosage: 11 MILLIGRAM DAILY;
     Route: 042
     Dates: start: 20181226, end: 20190107
  5. TRISENOX [Suspect]
     Active Substance: ARSENIC TRIOXIDE
     Route: 042
     Dates: start: 20190112, end: 20190116

REACTIONS (6)
  - Electrocardiogram QT prolonged [Recovered/Resolved]
  - Differentiation syndrome [Recovered/Resolved]
  - White blood cell count increased [Recovering/Resolving]
  - Back pain [Recovering/Resolving]
  - Hepatic function abnormal [Unknown]
  - Pulmonary oedema [Unknown]

NARRATIVE: CASE EVENT DATE: 20181227
